FAERS Safety Report 6315828-0 (Version None)
Quarter: 2009Q3

REPORT INFORMATION
  Report Type: 
  Country: None (occurrence: None)
  Receive Date: 20090820
  Receipt Date: 20090807
  Transmission Date: 20100115
  Serious: Yes (Hospitalization)
  Sender: FDA-Public Use
  Company Number: FR-RANBAXY-2009RR-26408

PATIENT
  Age: 82 Year
  Sex: Female

DRUGS (7)
  1. FENOFIBRATE [Suspect]
     Indication: DYSLIPIDAEMIA
     Dosage: 200 MG, UNK
     Route: 048
     Dates: end: 20040601
  2. LANZOR [Suspect]
     Indication: PROPHYLAXIS
     Dosage: 15 MG, UNK
     Route: 048
     Dates: end: 20040601
  3. DOLIPRANE [Suspect]
     Indication: DRUG USE FOR UNKNOWN INDICATION
     Dosage: 1000 MG, UNK
     Route: 048
     Dates: end: 20040601
  4. VIOXX [Suspect]
     Indication: ARTHRALGIA
     Dosage: 12.5 MG, UNK
     Route: 048
     Dates: end: 20040601
  5. CALCIT D3 [Concomitant]
     Indication: DRUG USE FOR UNKNOWN INDICATION
     Route: 048
  6. DIDRONEL [Concomitant]
     Indication: OSTEOPOROSIS
     Route: 048
  7. ART 50 [Concomitant]
     Indication: DRUG USE FOR UNKNOWN INDICATION
     Route: 048

REACTIONS (6)
  - ANTINUCLEAR ANTIBODY POSITIVE [None]
  - ASTHENIA [None]
  - DIARRHOEA [None]
  - HEPATITIS [None]
  - INFLAMMATORY PAIN [None]
  - RENAL FAILURE [None]
